FAERS Safety Report 4583897-4 (Version None)
Quarter: 2005Q1

REPORT INFORMATION
  Report Type: 
  Country: None (occurrence: None)
  Receive Date: 20050211
  Receipt Date: 20041217
  Transmission Date: 20050727
  Serious: Yes (Other)
  Sender: FDA-Public Use
  Company Number: 2004116891

PATIENT
  Age: 82 Year
  Sex: Male

DRUGS (1)
  1. BEXTRA [Suspect]
     Indication: BACK DISORDER
     Dosage: (20 MG, DAILY)
     Dates: start: 20040101, end: 20040101

REACTIONS (4)
  - CARDIAC FAILURE [None]
  - JOINT SWELLING [None]
  - PULMONARY OEDEMA [None]
  - WEIGHT INCREASED [None]
